FAERS Safety Report 14242204 (Version 1)
Quarter: 2017Q4

REPORT INFORMATION
  Report Type: Spontaneous
  Country: US (occurrence: US)
  Receive Date: 20171130
  Receipt Date: 20171130
  Transmission Date: 20180321
  Serious: Yes (Disabling)
  Sender: FDA-Public Use
  Company Number: None

PATIENT
  Age: 52 Year
  Sex: Female
  Weight: 76.5 kg

DRUGS (1)
  1. METFORMIN ER 24 HR TABS V [Suspect]
     Active Substance: METFORMIN HYDROCHLORIDE
     Indication: DIABETES MELLITUS
     Dosage: ?          QUANTITY:60 TABLET(S);?
     Route: 048
     Dates: start: 20171102, end: 20171128

REACTIONS (9)
  - Bone pain [None]
  - Headache [None]
  - Asthenia [None]
  - Muscular weakness [None]
  - Fatigue [None]
  - Blood glucose increased [None]
  - Nasopharyngitis [None]
  - Product substitution issue [None]
  - Arthralgia [None]

NARRATIVE: CASE EVENT DATE: 20171102
